FAERS Safety Report 8349602-0 (Version None)
Quarter: 2012Q2

REPORT INFORMATION
  Report Type: 
  Country: None (occurrence: None)
  Receive Date: 20120510
  Receipt Date: 20120502
  Transmission Date: 20120825
  Serious: Yes (Other)
  Sender: FDA-Public Use
  Company Number: US-BAYER-2011-075748

PATIENT
  Age: 26 Year
  Sex: Female
  Weight: 124.26 kg

DRUGS (4)
  1. IBUPROFEN [Concomitant]
     Dosage: UNK
     Dates: start: 20010101
  2. NEXIUM [Concomitant]
     Dosage: 40 MG, DAILY
     Route: 048
     Dates: start: 20080818
  3. YASMIN [Suspect]
     Indication: PREMENSTRUAL SYNDROME
     Dosage: UNK
     Dates: start: 20080201, end: 20081101
  4. LEXAPRO [Concomitant]
     Dosage: 1 DAILY
     Route: 048
     Dates: start: 20080818

REACTIONS (4)
  - CHOLECYSTITIS CHRONIC [None]
  - CHOLECYSTECTOMY [None]
  - INJURY [None]
  - PAIN [None]
